FAERS Safety Report 4871579-0 (Version None)
Quarter: 2005Q4

REPORT INFORMATION
  Report Type: 
  Country: None (occurrence: None)
  Receive Date: 20051230
  Receipt Date: 20051222
  Transmission Date: 20060501
  Serious: Yes (Other)
  Sender: FDA-Public Use
  Company Number: ESP05000136

PATIENT
  Age: 69 Year
  Sex: Female
  Weight: 80 kg

DRUGS (1)
  1. ACREL (RISEDRONATE SODIUM 35 MG) TABLET, 35 MG [Suspect]
     Indication: OSTEOPOROSIS
     Dosage: 25 MG 1/WEEK ORAL
     Route: 048
     Dates: start: 20051004, end: 20051104

REACTIONS (1)
  - PHOTOSENSITIVITY REACTION [None]
